FAERS Safety Report 5517832-9 (Version None)
Quarter: 2007Q4

REPORT INFORMATION
  Report Type: 
  Country: None (occurrence: None)
  Receive Date: 20071114
  Receipt Date: 20071105
  Transmission Date: 20080405
  Serious: Yes (Hospitalization)
  Sender: FDA-Public Use
  Company Number: FR-GILEAD-2007-0013760

PATIENT
  Sex: Female
  Weight: 52.4 kg

DRUGS (9)
  1. TRUVADA [Suspect]
     Indication: HIV INFECTION
     Route: 048
     Dates: start: 20070918
  2. SUSTIVA [Suspect]
     Indication: HIV INFECTION
     Route: 048
     Dates: start: 20070918
  3. RIFADIN [Concomitant]
     Indication: TUBERCULOSIS
     Route: 048
     Dates: start: 20070827, end: 20071002
  4. RIMIFON [Concomitant]
     Indication: TUBERCULOSIS
     Route: 048
     Dates: start: 20070827, end: 20071002
  5. BACTRIM LOW [Concomitant]
     Route: 048
     Dates: start: 20070630
  6. LEDERFOLINE [Concomitant]
     Route: 048
     Dates: start: 20070629
  7. ZELITREX [Concomitant]
     Indication: HERPES VIRUS INFECTION
     Route: 048
     Dates: start: 20070630
  8. TARDIFERON [Concomitant]
     Indication: ANAEMIA
     Route: 048
     Dates: start: 20070705
  9. STILNOX [Concomitant]
     Route: 048

REACTIONS (1)
  - VIRAL INFECTION [None]
